FAERS Safety Report 16120610 (Version 1)
Quarter: 2019Q1

REPORT INFORMATION
  Report Type: Spontaneous
  Country: US (occurrence: US)
  Receive Date: 20190221
  Receipt Date: 20190221
  Transmission Date: 20190418
  Serious: Yes (Hospitalization)
  Sender: FDA-Public Use
  Company Number: None

PATIENT
  Age: 66 Year
  Sex: Female
  Weight: 78.3 kg

DRUGS (3)
  1. LIPOSOMAL [Suspect]
     Active Substance: AMPHOTERICIN B
  2. BEVACIZUMAB (RHUMAB VEGF) [Suspect]
     Active Substance: BEVACIZUMAB
     Dates: end: 20190128
  3. DOXIL [Suspect]
     Active Substance: DOXORUBICIN HYDROCHLORIDE

REACTIONS (3)
  - Device dislocation [None]
  - Flank pain [None]
  - Post procedural discharge [None]

NARRATIVE: CASE EVENT DATE: 20190208
